FAERS Safety Report 13376061 (Version 2)
Quarter: 2017Q1

REPORT INFORMATION
  Report Type: Spontaneous
  Country: US (occurrence: US)
  Receive Date: 20170328
  Receipt Date: 20170328
  Transmission Date: 20170429
  Serious: No
  Sender: FDA-Public Use
  Company Number: US-ASTELLAS-2016US016969

PATIENT
  Sex: Female

DRUGS (2)
  1. PROTOPIC [Suspect]
     Active Substance: TACROLIMUS
     Indication: BENIGN FAMILIAL PEMPHIGUS
     Dosage: UNK, UNKNOWN FREQ.
     Route: 065
  2. TACROLIMUS OINTMENT [Suspect]
     Active Substance: TACROLIMUS
     Indication: BENIGN FAMILIAL PEMPHIGUS
     Dosage: UNK, UNKNOWN FREQ.
     Route: 065

REACTIONS (1)
  - Off label use [Unknown]
